FAERS Safety Report 7508809 (Version 3)
Quarter: 2017Q3

REPORT INFORMATION
  Report Type: Spontaneous
  Country: US (occurrence: US)
  Receive Date: 20100729
  Receipt Date: 20170921
  Transmission Date: 20171128
  Serious: Yes (Death, Hospitalization, Other)
  Sender: FDA-Public Use
  Company Number: US-PFIZER INC-2007054561

PATIENT
  Age: 81 Year
  Sex: Female
  Weight: 127 kg

DRUGS (2)
  1. CELEBREX [Suspect]
     Active Substance: CELECOXIB
     Indication: OSTEOARTHRITIS
     Dosage: 200 MG, 1X/DAY
     Dates: start: 19991221, end: 20030216
  2. VIOXX [Suspect]
     Active Substance: ROFECOXIB
     Indication: OSTEOARTHRITIS
     Dosage: 25 MG, 1X/DAY (ONCE TO TWICE DAILY)
     Dates: start: 20010409, end: 20040917

REACTIONS (1)
  - Ischaemic stroke [Unknown]

NARRATIVE: CASE EVENT DATE: 20040506
